FAERS Safety Report 11503159 (Version 12)
Quarter: 2017Q1

REPORT INFORMATION
  Report Type: Spontaneous
  Country: US (occurrence: US)
  Receive Date: 20150914
  Receipt Date: 20170103
  Transmission Date: 20170428
  Serious: Yes (Hospitalization, Other)
  Sender: FDA-Public Use
  Company Number: US-ASTELLAS-2015US031028

PATIENT
  Age: 83 Year
  Sex: Male

DRUGS (4)
  1. XTANDI [Suspect]
     Active Substance: ENZALUTAMIDE
     Indication: PROSTATE CANCER
     Route: 048
  2. XTANDI [Suspect]
     Active Substance: ENZALUTAMIDE
     Route: 048
  3. XTANDI [Suspect]
     Active Substance: ENZALUTAMIDE
     Route: 048
     Dates: start: 20150929
  4. XTANDI [Suspect]
     Active Substance: ENZALUTAMIDE
     Route: 048
     Dates: end: 201608

REACTIONS (17)
  - Bladder cancer [Not Recovered/Not Resolved]
  - Prostatic specific antigen increased [Unknown]
  - Arrhythmia [Unknown]
  - Prostatic specific antigen increased [Not Recovered/Not Resolved]
  - Tongue disorder [Unknown]
  - Back pain [Unknown]
  - Prostatic specific antigen increased [Not Recovered/Not Resolved]
  - Drug ineffective [Not Recovered/Not Resolved]
  - Tooth disorder [Unknown]
  - Dizziness [Unknown]
  - Drug dose omission [Unknown]
  - Arrhythmia [Unknown]
  - Ageusia [Not Recovered/Not Resolved]
  - Lethargy [Not Recovered/Not Resolved]
  - Haematuria [Unknown]
  - Fatigue [Not Recovered/Not Resolved]
  - Nephrostomy [Unknown]

NARRATIVE: CASE EVENT DATE: 201507
